FAERS Safety Report 4950420-1 (Version None)
Quarter: 2006Q1

REPORT INFORMATION
  Report Type: 
  Country: None (occurrence: None)
  Receive Date: 20060127
  Receipt Date: 20050316
  Transmission Date: 20060701
  Serious: Yes (Hospitalization)
  Sender: FDA-Public Use
  Company Number: 05-03-0421

PATIENT
  Age: 38 Year
  Sex: Female

DRUGS (1)
  1. CLOZAPINE [Suspect]
     Dosage: 500 MG, QD, ORAL
     Route: 048
     Dates: start: 20030601, end: 20050201

REACTIONS (2)
  - BLOOD TRIGLYCERIDES INCREASED [None]
  - PSYCHOTIC DISORDER [None]
